FAERS Safety Report 23312531 (Version 1)
Quarter: 2023Q4

REPORT INFORMATION
  Report Type: Spontaneous
  Country: US (occurrence: US)
  Receive Date: 20231219
  Receipt Date: 20231219
  Transmission Date: 20240110
  Serious: No
  Sender: FDA-Public Use
  Company Number: US-ELI_LILLY_AND_COMPANY-US202312009523

PATIENT
  Sex: Female

DRUGS (2)
  1. BASAGLAR [Suspect]
     Active Substance: INSULIN GLARGINE
     Indication: Product used for unknown indication
     Dosage: 20 U, DAILY
     Route: 065
     Dates: start: 20231130
  2. HUMALOG [Suspect]
     Active Substance: INSULIN LISPRO
     Indication: Product used for unknown indication
     Dosage: 10 U, TID
     Route: 065
     Dates: start: 20231130

REACTIONS (4)
  - Glycosylated haemoglobin increased [Unknown]
  - Product storage error [Unknown]
  - Injection site haemorrhage [Unknown]
  - Blood glucose decreased [Unknown]
